FAERS Safety Report 7217328-2 (Version None)
Quarter: 2011Q1

REPORT INFORMATION
  Report Type: 
  Country: None (occurrence: None)
  Receive Date: 20110110
  Receipt Date: 20101229
  Transmission Date: 20110831
  Serious: Yes (Hospitalization)
  Sender: FDA-Public Use
  Company Number: BR-SANOFI-AVENTIS-2010SA071326

PATIENT
  Age: 76 Year
  Sex: Female

DRUGS (10)
  1. LASIX [Concomitant]
     Route: 065
  2. LANTUS [Suspect]
     Dosage: 35IU IN MORNING; 25IU AT NIGHT
     Route: 058
  3. PLAVIX [Concomitant]
     Route: 065
  4. AUTOPEN 24 [Suspect]
  5. ALDACTONE [Concomitant]
     Route: 065
  6. CRESTOR [Concomitant]
     Route: 065
  7. GLUCOFORMIN [Concomitant]
     Route: 065
  8. AUTOPEN 24 [Suspect]
  9. CARVEDILOL [Concomitant]
     Route: 065
  10. ATACAND [Concomitant]
     Route: 065

REACTIONS (4)
  - HYPERGLYCAEMIA [None]
  - FEELING ABNORMAL [None]
  - FATIGUE [None]
  - HYPOGLYCAEMIA [None]
